FAERS Safety Report 6750517-X (Version None)
Quarter: 2010Q2

REPORT INFORMATION
  Report Type: 
  Country: None (occurrence: None)
  Receive Date: 20100528
  Receipt Date: 20100528
  Transmission Date: 20101027
  Serious: No
  Sender: FDA-Public Use
  Company Number: None

PATIENT
  Age: 50 Year
  Sex: Female
  Weight: 56.6996 kg

DRUGS (1)
  1. NEXIUM [Suspect]
     Indication: DRUG INEFFECTIVE
     Dosage: 40MG DAILY PO
     Route: 048

REACTIONS (2)
  - BLOOD IRON DECREASED [None]
  - PRODUCT QUALITY ISSUE [None]
